FAERS Safety Report 12400870 (Version 1)
Quarter: 2016Q2

REPORT INFORMATION
  Report Type: Spontaneous
  Country: US (occurrence: None)
  Receive Date: 20160524
  Receipt Date: 20160524
  Transmission Date: 20160815
  Serious: Yes (Other)
  Sender: FDA-Public Use
  Company Number: None

PATIENT
  Age: 65 Year
  Sex: Female
  Weight: 56.7 kg

DRUGS (3)
  1. MX VIT [Concomitant]
  2. TRAZODONE [Suspect]
     Active Substance: TRAZODONE HYDROCHLORIDE
     Indication: INSOMNIA
     Route: 048
     Dates: start: 20160430, end: 20160430
  3. LYRICA [Concomitant]
     Active Substance: PREGABALIN

REACTIONS (4)
  - Dizziness [None]
  - Cold sweat [None]
  - Fall [None]
  - Presyncope [None]

NARRATIVE: CASE EVENT DATE: 20160430
